FAERS Safety Report 14580395 (Version 1)
Quarter: 2018Q1

REPORT INFORMATION
  Report Type: Spontaneous
  Country: US (occurrence: US)
  Receive Date: 20180228
  Receipt Date: 20180228
  Transmission Date: 20180509
  Serious: No
  Sender: FDA-Public Use
  Company Number: US-GEMINI LABORATORIES, LLC-GEM201802-000006

PATIENT
  Age: 64 Year
  Sex: Male

DRUGS (1)
  1. PRANDIN [Suspect]
     Active Substance: REPAGLINIDE
     Indication: TYPE 2 DIABETES MELLITUS
     Route: 048
     Dates: start: 20161220

REACTIONS (2)
  - Weight increased [Unknown]
  - Blood urea increased [Not Recovered/Not Resolved]
